FAERS Safety Report 12193374 (Version 3)
Quarter: 2016Q2

REPORT INFORMATION
  Report Type: Spontaneous
  Country: US (occurrence: US)
  Receive Date: 20160320
  Receipt Date: 20160623
  Transmission Date: 20160815
  Serious: No
  Sender: FDA-Public Use
  Company Number: PHEH2016US006639

PATIENT
  Age: 67 Year
  Sex: Male

DRUGS (1)
  1. SANDOSTATIN LAR DEPOT [Suspect]
     Active Substance: OCTREOTIDE ACETATE
     Indication: PRODUCT USED FOR UNKNOWN INDICATION
     Dosage: 20 MG, QMO (ONCE A MONTH)
     Route: 030

REACTIONS (2)
  - Product quality issue [Unknown]
  - Syringe issue [Recovered/Resolved]

NARRATIVE: CASE EVENT DATE: 20160315
